FAERS Safety Report 8503552-5 (Version None)
Quarter: 2012Q3

REPORT INFORMATION
  Report Type: 
  Country: None (occurrence: None)
  Receive Date: 20120711
  Receipt Date: 20120704
  Transmission Date: 20120928
  Serious: Yes (Other)
  Sender: FDA-Public Use
  Company Number: GB-UCBSA-058018

PATIENT
  Age: 37 Year
  Sex: Female
  Weight: 145.1 kg

DRUGS (4)
  1. VIMPAT [Suspect]
     Indication: CYTOGENETIC ABNORMALITY
     Route: 048
     Dates: start: 20120101
  2. OXCARBAZEPINE [Concomitant]
     Indication: EPILEPSY
     Route: 048
  3. PHENYTOIN SODIUM [Concomitant]
     Indication: EPILEPSY
     Route: 048
  4. RISPERIDONE [Concomitant]
     Indication: EPILEPSY
     Route: 048
     Dates: start: 20110601

REACTIONS (1)
  - WEIGHT INCREASED [None]
